FAERS Safety Report 5380199-3 (Version None)
Quarter: 2007Q3

REPORT INFORMATION
  Report Type: 
  Country: None (occurrence: None)
  Receive Date: 20070706
  Receipt Date: 20070510
  Transmission Date: 20080115
  Serious: No
  Sender: FDA-Public Use
  Company Number: A0650808A

PATIENT
  Age: 63 Year
  Sex: Female

DRUGS (9)
  1. TYKERB [Suspect]
     Indication: BREAST CANCER
     Dosage: 5TAB PER DAY
     Route: 048
     Dates: start: 20070503
  2. MAXZIDE [Concomitant]
  3. PRILOSEC [Concomitant]
  4. BENICAR [Concomitant]
  5. LIPITOR [Concomitant]
  6. ALTACE [Concomitant]
  7. METOPROLOL SUCCINATE [Concomitant]
  8. CLONIDINE [Concomitant]
  9. FUROSEMIDE INTENSOL [Concomitant]

REACTIONS (5)
  - ANOREXIA [None]
  - DIARRHOEA [None]
  - FATIGUE [None]
  - HAEMATOCHEZIA [None]
  - NAUSEA [None]
